FAERS Safety Report 23037121 (Version 1)
Quarter: 2023Q4

REPORT INFORMATION
  Report Type: Spontaneous
  Country: GB (occurrence: GB)
  Receive Date: 20231006
  Receipt Date: 20231006
  Transmission Date: 20240109
  Serious: No
  Sender: FDA-Public Use
  Company Number: None

PATIENT

DRUGS (1)
  1. IBUPROFEN [Suspect]
     Active Substance: IBUPROFEN
     Indication: Adenovirus infection
     Dosage: 2 DOSAGE FORM (TABLET)
     Route: 065

REACTIONS (1)
  - Abdominal pain upper [Recovered/Resolved]
